FAERS Safety Report 4726260-5 (Version None)
Quarter: 2005Q3

REPORT INFORMATION
  Report Type: 
  Country: None (occurrence: None)
  Receive Date: 20050725
  Receipt Date: 20050714
  Transmission Date: 20060218
  Serious: Yes (Disabling)
  Sender: FDA-Public Use
  Company Number: 2005-130481-NL

PATIENT
  Age: 3 Year
  Sex: Male

DRUGS (3)
  1. PANCURONIUM [Suspect]
     Indication: LIFE SUPPORT
  2. NITROUS OXIDE [Suspect]
  3. LOOP DIURETIC [Suspect]

REACTIONS (3)
  - DEAFNESS NEUROSENSORY [None]
  - RENAL FAILURE ACUTE [None]
  - SPEECH DISORDER DEVELOPMENTAL [None]
